FAERS Safety Report 9115566 (Version 1)
Quarter: 2013Q1

REPORT INFORMATION
  Report Type: Spontaneous
  Country: DK (occurrence: None)
  Receive Date: 20130129
  Receipt Date: 20130129
  Transmission Date: 20140127
  Serious: Yes (Other)
  Sender: FDA-Public Use
  Company Number: 2013MA000644

PATIENT
  Sex: Female

DRUGS (1)
  1. TRAMADOL HYDROCHLORIDE TABLETS, 50 MG (PUREPAC) (TRAMADOL) [Suspect]
     Dosage: 2 DF; QD
     Dates: start: 20121227

REACTIONS (7)
  - Hallucination, visual [None]
  - Euphoric mood [None]
  - Nightmare [None]
  - Depressed mood [None]
  - Paraesthesia [None]
  - Hypoaesthesia [None]
  - Fear [None]
